FAERS Safety Report 7138707-8 (Version None)
Quarter: 2010Q4

REPORT INFORMATION
  Report Type: 
  Country: None (occurrence: None)
  Receive Date: 20101122
  Receipt Date: 20101110
  Transmission Date: 20110411
  Serious: Yes (Death, Life-Threatening, Hospitalization, Other)
  Sender: FDA-Public Use
  Company Number: 2009AC000311

PATIENT
  Age: 62 Year
  Sex: Male

DRUGS (41)
  1. DIGOXIN [Suspect]
     Dosage: (0.250 MG; QD; PO) (0.250 MG) (0.125 MG; PO) (0.125 MG; 5 DAYS/WEEK; PO) (0.125 MG; 5 DAYS/WEEK; PO)
     Route: 048
     Dates: start: 20020901, end: 20040114
  2. DIGOXIN [Suspect]
     Dosage: (0.250 MG; QD; PO) (0.250 MG) (0.125 MG; PO) (0.125 MG; 5 DAYS/WEEK; PO) (0.125 MG; 5 DAYS/WEEK; PO)
     Route: 048
     Dates: start: 20040115, end: 20070725
  3. DIGOXIN [Suspect]
     Dosage: (0.250 MG; QD; PO) (0.250 MG) (0.125 MG; PO) (0.125 MG; 5 DAYS/WEEK; PO) (0.125 MG; 5 DAYS/WEEK; PO)
     Route: 048
     Dates: start: 20070726, end: 20080423
  4. DIGOXIN [Suspect]
     Dosage: (0.250 MG; QD; PO) (0.250 MG) (0.125 MG; PO) (0.125 MG; 5 DAYS/WEEK; PO) (0.125 MG; 5 DAYS/WEEK; PO)
     Route: 048
     Dates: start: 20080501, end: 20080512
  5. DIGOXIN [Suspect]
     Dosage: (0.250 MG; QD; PO) (0.250 MG) (0.125 MG; PO) (0.125 MG; 5 DAYS/WEEK; PO) (0.125 MG; 5 DAYS/WEEK; PO)
     Route: 048
     Dates: start: 20080516, end: 20080620
  6. DIGOXIN [Suspect]
     Dosage: (0.250 MG; QD; PO) (0.250 MG) (0.125 MG; PO) (0.125 MG; 5 DAYS/WEEK; PO) (0.125 MG; 5 DAYS/WEEK; PO)
     Route: 048
     Dates: start: 20080627, end: 20080629
  7. ISOSORBIDE DINITRATE [Concomitant]
  8. CARVEDILOL [Concomitant]
  9. SPIRONOLACTONE [Concomitant]
  10. POTASSIUM [Concomitant]
  11. TEMAZEPAM [Concomitant]
  12. RESTORIL [Concomitant]
  13. LASIX [Concomitant]
  14. METOLAZONE [Concomitant]
  15. LIPITOR [Concomitant]
  16. JANUVIA [Concomitant]
  17. LOVENOX [Concomitant]
  18. COUMADIN [Concomitant]
  19. ACTOS [Concomitant]
  20. COREG [Concomitant]
  21. DIOVAN HCT [Concomitant]
  22. AMIODARONE [Concomitant]
  23. SHINGLES VACCINE [Concomitant]
  24. ALTACE [Concomitant]
  25. VITAMIN K TAB [Concomitant]
  26. POTASSIUM CHLORIDE [Concomitant]
  27. PROTONIX [Concomitant]
  28. PLAVIX [Concomitant]
  29. AMBIEN [Concomitant]
  30. MYCOSTATIN [Concomitant]
  31. DILAUDID [Concomitant]
  32. SYNTHROID [Concomitant]
  33. MEXILETINE [Concomitant]
  34. DOPAMINE [Concomitant]
  35. VERSED [Concomitant]
  36. FENTANYL [Concomitant]
  37. REGLAN [Concomitant]
  38. HEPARIN [Concomitant]
  39. BLOOD TRANSFUSION [Concomitant]
  40. FRESH FROZEN PLASMA [Concomitant]
  41. ALBUMIN (HUMAN) [Concomitant]

REACTIONS (80)
  - ABDOMINAL DISCOMFORT [None]
  - ABDOMINAL PAIN [None]
  - ACTIVITIES OF DAILY LIVING IMPAIRED [None]
  - ACUTE PRERENAL FAILURE [None]
  - ALANINE AMINOTRANSFERASE INCREASED [None]
  - AMNESIA [None]
  - ANAEMIA [None]
  - ANHEDONIA [None]
  - ANXIETY [None]
  - AORTIC VALVE CALCIFICATION [None]
  - AORTIC VALVE INCOMPETENCE [None]
  - ARTERIOSCLEROSIS CORONARY ARTERY [None]
  - ASCITES [None]
  - ASPARTATE AMINOTRANSFERASE INCREASED [None]
  - ASTHENIA [None]
  - ASTHMA [None]
  - BLOOD BILIRUBIN INCREASED [None]
  - BLOOD POTASSIUM DECREASED [None]
  - BRAIN NATRIURETIC PEPTIDE INCREASED [None]
  - CACHEXIA [None]
  - CARDIAC ARREST [None]
  - CARDIAC FAILURE CONGESTIVE [None]
  - CARDIOMEGALY [None]
  - CHOLELITHIASIS [None]
  - COAGULOPATHY [None]
  - COLONIC POLYP [None]
  - CONFUSIONAL STATE [None]
  - CONGESTIVE CARDIOMYOPATHY [None]
  - DECREASED APPETITE [None]
  - DEHYDRATION [None]
  - DIABETES MELLITUS [None]
  - DIARRHOEA [None]
  - DIVERTICULUM [None]
  - DIZZINESS [None]
  - DRUG TOXICITY [None]
  - ECONOMIC PROBLEM [None]
  - EJECTION FRACTION DECREASED [None]
  - ENCEPHALOPATHY [None]
  - EPIDIDYMITIS [None]
  - FATIGUE [None]
  - FLUID RETENTION [None]
  - GASTRITIS [None]
  - GASTROINTESTINAL HAEMORRHAGE [None]
  - GLYCOSYLATED HAEMOGLOBIN INCREASED [None]
  - HAEMATOCHEZIA [None]
  - HAEMATOMA [None]
  - HAEMATURIA [None]
  - HYPERTENSION [None]
  - INJURY [None]
  - INSOMNIA [None]
  - INTERNATIONAL NORMALISED RATIO INCREASED [None]
  - ISCHAEMIC CARDIOMYOPATHY [None]
  - LEFT ATRIAL DILATATION [None]
  - LEFT VENTRICULAR DYSFUNCTION [None]
  - LIVER DISORDER [None]
  - LOSS OF CONSCIOUSNESS [None]
  - MITRAL VALVE CALCIFICATION [None]
  - MITRAL VALVE INCOMPETENCE [None]
  - NAUSEA [None]
  - NEUROMYOPATHY [None]
  - PAIN [None]
  - PAIN IN EXTREMITY [None]
  - PLEURAL EFFUSION [None]
  - RECTAL HAEMORRHAGE [None]
  - RENAL FAILURE [None]
  - RENAL FAILURE ACUTE [None]
  - RESPIRATORY FAILURE [None]
  - RESPIRATORY FATIGUE [None]
  - RIGHT VENTRICULAR HYPERTROPHY [None]
  - SCROTAL PAIN [None]
  - SWELLING [None]
  - SYNCOPE [None]
  - THERAPEUTIC AGENT TOXICITY [None]
  - THROMBOCYTOPENIA [None]
  - TRICUSPID VALVE INCOMPETENCE [None]
  - VASCULAR CALCIFICATION [None]
  - VENTRICULAR TACHYCARDIA [None]
  - VOMITING [None]
  - WEIGHT DECREASED [None]
  - WHITE BLOOD CELL COUNT INCREASED [None]
